FAERS Safety Report 6906239 (Version 4)
Quarter: 2013Q3

REPORT INFORMATION
  Report Type: Spontaneous
  Country: US (occurrence: US)
  Receive Date: 20090210
  Receipt Date: 20130719
  Transmission Date: 20140515
  Serious: Yes (Hospitalization)
  Sender: FDA-Public Use
  Company Number: US-ASTRAZENECA-2009UW03043

PATIENT
  Age: 65 Year
  Sex: Female
  Weight: 72.6 kg

DRUGS (5)
  1. TOPROL XL [Suspect]
     Indication: BLOOD PRESSURE ABNORMAL
     Route: 048
     Dates: start: 20010202
  2. TOPROL XL [Suspect]
     Indication: BLOOD PRESSURE ABNORMAL
     Dosage: GENERIC
     Route: 048
     Dates: start: 2009
  3. NEXIUM [Suspect]
     Route: 048
  4. NICARDIPINE [Concomitant]
     Indication: BLOOD PRESSURE ABNORMAL
  5. TRIAMTERENE HCTZ [Concomitant]
     Indication: BLOOD PRESSURE ABNORMAL
     Dosage: 75/50 DAILY

REACTIONS (4)
  - Diverticulitis [Recovered/Resolved]
  - Pain [Recovered/Resolved]
  - Back injury [Unknown]
  - Photopsia [Unknown]
